FAERS Safety Report 8978615 (Version 1)
Quarter: 2012Q4

REPORT INFORMATION
  Report Type: Spontaneous
  Country: US (occurrence: None)
  Receive Date: 20121218
  Receipt Date: 20121218
  Transmission Date: 20130627
  Serious: No
  Sender: FDA-Public Use
  Company Number: None

PATIENT
  Sex: Female
  Weight: 51.26 kg

DRUGS (1)
  1. BUPROPION [Suspect]
     Dosage: 1  Daily po
     Route: 048
     Dates: start: 20110101, end: 20121216

REACTIONS (13)
  - Mood altered [None]
  - Headache [None]
  - Vision blurred [None]
  - Musculoskeletal stiffness [None]
  - Musculoskeletal stiffness [None]
  - Bruxism [None]
  - Mood swings [None]
  - Apathy [None]
  - Anger [None]
  - Feeling of despair [None]
  - Crying [None]
  - Feeling abnormal [None]
  - Product substitution issue [None]
